FAERS Safety Report 5483376-6 (Version None)
Quarter: 2007Q4

REPORT INFORMATION
  Report Type: 
  Country: None (occurrence: None)
  Receive Date: 20071009
  Receipt Date: 20071009
  Transmission Date: 20080405
  Serious: Yes (Other)
  Sender: FDA-Public Use
  Company Number: None

PATIENT
  Sex: Female
  Weight: 54.4316 kg

DRUGS (1)
  1. FOSAMAX [Suspect]
     Indication: OSTEOPOROSIS
     Dosage: 1 TABLET WEEKLY ORAL
     Route: 048
     Dates: start: 20060510, end: 20060815

REACTIONS (4)
  - ARTHRALGIA [None]
  - LOOSE TOOTH [None]
  - PRURITUS [None]
  - RASH [None]
